FAERS Safety Report 6963037-4 (Version None)
Quarter: 2010Q3

REPORT INFORMATION
  Report Type: 
  Country: None (occurrence: None)
  Receive Date: 20100830
  Receipt Date: 20100825
  Transmission Date: 20110219
  Serious: Yes (Life-Threatening, Hospitalization, Disabling, Other)
  Sender: FDA-Public Use
  Company Number: 2010SP045041

PATIENT
  Age: 24 Year
  Sex: Female
  Weight: 74 kg

DRUGS (1)
  1. NUVARING [Suspect]
     Indication: CONTRACEPTION
     Dates: start: 20070522, end: 20100804

REACTIONS (5)
  - APPARENT LIFE THREATENING EVENT [None]
  - DEEP VEIN THROMBOSIS [None]
  - INFARCTION [None]
  - PNEUMONIA [None]
  - PULMONARY EMBOLISM [None]
